FAERS Safety Report 9732641 (Version 1)
Quarter: 2013Q4

REPORT INFORMATION
  Report Type: Spontaneous
  Country: US (occurrence: None)
  Receive Date: 20131204
  Receipt Date: 20131204
  Transmission Date: 20140711
  Serious: Yes (Hospitalization)
  Sender: FDA-Public Use
  Company Number: None

PATIENT
  Age: 58 Year
  Sex: Female
  Weight: 61 kg

DRUGS (2)
  1. TICAGRELOR [Suspect]
     Indication: STENT PLACEMENT
     Dosage: 1 PILL, BID, ORAL
     Route: 048
  2. ASPIRIN [Concomitant]

REACTIONS (2)
  - Hypotension [None]
  - Lower gastrointestinal haemorrhage [None]
